FAERS Safety Report 15671619 (Version 1)
Quarter: 2018Q4

REPORT INFORMATION
  Report Type: Report from Study
  Country: US (occurrence: US)
  Receive Date: 20181129
  Receipt Date: 20181129
  Transmission Date: 20190205
  Serious: No
  Sender: FDA-Public Use
  Company Number: US-TESARO, INC.-2018-TSO0723-US

PATIENT
  Sex: Female
  Weight: 90.7 kg

DRUGS (2)
  1. ZEJULA [Suspect]
     Active Substance: NIRAPARIB
     Indication: OVARIAN CANCER
     Dosage: 200 MG, QD
     Route: 048
  2. ZEJULA [Suspect]
     Active Substance: NIRAPARIB
     Dosage: 300 MG, QD
     Route: 048
     Dates: start: 20180124

REACTIONS (7)
  - Carbohydrate antigen 125 increased [Not Recovered/Not Resolved]
  - Back pain [Unknown]
  - Abdominal distension [Not Recovered/Not Resolved]
  - Underdose [Unknown]
  - Pain [Not Recovered/Not Resolved]
  - Abdominal pain upper [Unknown]
  - Refraction disorder [Not Recovered/Not Resolved]

NARRATIVE: CASE EVENT DATE: 2018
